FAERS Safety Report 5060514-0 (Version None)
Quarter: 2006Q3

REPORT INFORMATION
  Report Type: 
  Country: None (occurrence: None)
  Receive Date: 20060721
  Receipt Date: 20060721
  Transmission Date: 20061208
  Serious: Yes (Hospitalization)
  Sender: FDA-Public Use
  Company Number: None

PATIENT
  Age: 41 Year
  Sex: Female
  Weight: 49 kg

DRUGS (2)
  1. FLUDARABINE [Suspect]
     Indication: ACUTE MYELOID LEUKAEMIA
     Dosage: 48 DAILY IV
     Route: 042
     Dates: start: 20060328, end: 20060401
  2. MELPHALAN [Suspect]
     Dosage: 224  TIMES ONE IV
     Route: 042
     Dates: start: 20060402, end: 20060402

REACTIONS (6)
  - BRAIN MASS [None]
  - CEREBRAL FUNGAL INFECTION [None]
  - CEREBRAL INFARCTION [None]
  - HEMIPARESIS [None]
  - HEPATIC INFECTION FUNGAL [None]
  - LOWER RESPIRATORY TRACT INFECTION FUNGAL [None]
